FAERS Safety Report 9915684 (Version 1)
Quarter: 2014Q1

REPORT INFORMATION
  Report Type: Spontaneous
  Country: US (occurrence: None)
  Receive Date: 20140219
  Receipt Date: 20140219
  Transmission Date: 20141002
  Serious: Yes (Life-Threatening, Disabling, Other)
  Sender: FDA-Public Use
  Company Number: None

PATIENT
  Age: 21 Year
  Sex: Female

DRUGS (1)
  1. LEVOTHYROXINE [Suspect]
     Indication: HYPOTHYROIDISM
     Dosage: 1 PILL
     Route: 048
     Dates: start: 20130322, end: 20130801

REACTIONS (6)
  - Palpitations [None]
  - Loss of consciousness [None]
  - Overdose [None]
  - Feeling abnormal [None]
  - Cardiac disorder [None]
  - Weight increased [None]
